FAERS Safety Report 12884172 (Version 4)
Quarter: 2019Q1

REPORT INFORMATION
  Report Type: Spontaneous
  Country: JP (occurrence: JP)
  Receive Date: 20161026
  Receipt Date: 20190124
  Transmission Date: 20190417
  Serious: Yes (Hospitalization, Other)
  Sender: FDA-Public Use
  Company Number: JP-ROCHE-1846486

PATIENT
  Age: 14 Year
  Sex: Male
  Weight: 49 kg

DRUGS (16)
  1. SAXIZON [Concomitant]
     Active Substance: HYDROCORTISONE SODIUM SUCCINATE
     Indication: ASTHMA
     Dosage: 200 MG, QD
     Route: 041
     Dates: start: 20141016, end: 20141024
  2. VOLTAREN [Concomitant]
     Active Substance: DICLOFENAC SODIUM
     Indication: PRODUCT USED FOR UNKNOWN INDICATION
     Dosage: 25 MG, TID
     Route: 048
     Dates: start: 20141016, end: 20141016
  3. NUCALA [Concomitant]
     Active Substance: MEPOLIZUMAB
     Indication: PRODUCT USED FOR UNKNOWN INDICATION
     Dosage: UNK
     Route: 065
  4. PREDONINE [Concomitant]
     Active Substance: PREDNISOLONE
     Dosage: 15 MG, UNK
     Route: 048
     Dates: start: 20141113
  5. XOLAIR [Suspect]
     Active Substance: OMALIZUMAB
     Route: 058
     Dates: start: 20141113
  6. KLARICID [Concomitant]
     Active Substance: CLARITHROMYCIN
     Indication: ASTHMA
     Dosage: 100 MG, BID
     Route: 048
  7. TAKEPRON [Concomitant]
     Active Substance: LANSOPRAZOLE
     Indication: PRODUCT USED FOR UNKNOWN INDICATION
     Dosage: 30 MG, QD
     Route: 048
  8. NEOPHYLLIN [Concomitant]
     Active Substance: AMINOPHYLLINE
     Indication: ASTHMA
     Dosage: 125 MG, QD
     Route: 041
     Dates: start: 20141016
  9. NEOPHYLLIN [Concomitant]
     Active Substance: AMINOPHYLLINE
     Dosage: 125 MG, QD
     Route: 041
     Dates: start: 20141218
  10. XOLAIR [Suspect]
     Active Substance: OMALIZUMAB
     Route: 058
     Dates: start: 20141215
  11. AMBROXOL HYDROCHLORIDE [Concomitant]
     Active Substance: AMBROXOL HYDROCHLORIDE
     Indication: ASTHMA
     Dosage: 30 MG, BID
     Route: 048
     Dates: start: 20141016
  12. PREDONINE [Concomitant]
     Active Substance: PREDNISOLONE
     Indication: ASTHMA
     Dosage: 30 MG, QD
     Route: 048
     Dates: start: 20141113, end: 20141116
  13. ALLEGRA [Concomitant]
     Active Substance: FEXOFENADINE HYDROCHLORIDE
     Indication: ASTHMA
     Dosage: 60 MG, BID
     Route: 048
     Dates: start: 20141016
  14. SAXIZON [Concomitant]
     Active Substance: HYDROCORTISONE SODIUM SUCCINATE
     Dosage: 200 MG, UNK
     Route: 041
     Dates: start: 20141218
  15. XOLAIR [Suspect]
     Active Substance: OMALIZUMAB
     Indication: ASTHMA
     Route: 058
     Dates: start: 20141016
  16. THEO-DUR [Concomitant]
     Active Substance: THEOPHYLLINE ANHYDROUS
     Indication: ASTHMA
     Dosage: 150 MG, BID
     Route: 048
     Dates: start: 20141016

REACTIONS (13)
  - Blood pressure decreased [Recovered/Resolved]
  - Insomnia [Unknown]
  - Blood immunoglobulin G decreased [Unknown]
  - Dyspnoea [Recovered/Resolved]
  - Immunodeficiency [Unknown]
  - Swelling of eyelid [Unknown]
  - Erythema [Unknown]
  - Shock symptom [Recovered/Resolved]
  - Swelling face [Unknown]
  - Erythema [Recovered/Resolved]
  - Pain in extremity [Unknown]
  - Lip swelling [Recovered/Resolved]
  - Hot flush [Unknown]

NARRATIVE: CASE EVENT DATE: 20141016
